FAERS Safety Report 6080296-3 (Version None)
Quarter: 2009Q1

REPORT INFORMATION
  Report Type: 
  Country: None (occurrence: None)
  Receive Date: 20090217
  Receipt Date: 20090211
  Transmission Date: 20090719
  Serious: Yes (Hospitalization)
  Sender: FDA-Public Use
  Company Number: FR-ASTRAZENECA-2009CG00357

PATIENT
  Age: 78 Year
  Sex: Female

DRUGS (16)
  1. TENORMIN [Suspect]
     Route: 048
     Dates: end: 20081201
  2. TENORMIN [Suspect]
     Route: 048
     Dates: start: 20081201
  3. AMLOR [Suspect]
     Route: 048
     Dates: end: 20081201
  4. LASILIX [Suspect]
     Route: 048
     Dates: end: 20081201
  5. NEXIUM [Concomitant]
  6. NEORAL [Concomitant]
  7. CERTICAN [Concomitant]
  8. OROCAL D3 [Concomitant]
  9. IMOVANE [Concomitant]
  10. LEVOTHYROX [Concomitant]
  11. ARANESP [Concomitant]
  12. AUGMENTIN '125' [Concomitant]
  13. ARTELAC [Concomitant]
  14. RIVOTRIL [Concomitant]
  15. TAHOR [Concomitant]
  16. ZALDIAR [Concomitant]

REACTIONS (2)
  - FALL [None]
  - ORTHOSTATIC HYPOTENSION [None]
